FAERS Safety Report 14842922 (Version 1)
Quarter: 2018Q2

REPORT INFORMATION
  Report Type: Spontaneous
  Country: PT (occurrence: PT)
  Receive Date: 20180503
  Receipt Date: 20180503
  Transmission Date: 20180711
  Serious: Yes (Other)
  Sender: FDA-Public Use
  Company Number: PT-BAYER-2018-080525

PATIENT
  Age: 49 Year
  Sex: Male
  Weight: 100 kg

DRUGS (2)
  1. CIPROXINA 250 MG (CIPROFLOXACIN HYDROCHLORIDE) [Suspect]
     Active Substance: CIPROFLOXACIN HYDROCHLORIDE
     Dosage: 2000 MG, BID
     Route: 048
     Dates: start: 20180417, end: 20180418
  2. PROFENID [Suspect]
     Active Substance: KETOPROFEN
     Dosage: 200 MG, BID
     Route: 048
     Dates: start: 20180417, end: 20180418

REACTIONS (3)
  - Swelling face [Recovered/Resolved]
  - Erythema [Recovered/Resolved]
  - Eye swelling [Recovered/Resolved]

NARRATIVE: CASE EVENT DATE: 20180417
